FAERS Safety Report 10440988 (Version 1)
Quarter: 2014Q3

REPORT INFORMATION
  Report Type: Spontaneous
  Country: US (occurrence: None)
  Receive Date: 20140905
  Receipt Date: 20140905
  Transmission Date: 20150326
  Serious: Yes (Other)
  Sender: FDA-Public Use
  Company Number: 2014HINLIT0769

PATIENT
  Age: 41 Year
  Sex: Female

DRUGS (1)
  1. LOPINAVIR + RITONAVIR [Suspect]
     Active Substance: LOPINAVIR\RITONAVIR
     Indication: ACQUIRED IMMUNODEFICIENCY SYNDROME
     Dosage: 80MG/20MG/ML SUSPENSION) AT 20-INTERVALS ON DAY 1, UNKNOWN

REACTIONS (1)
  - Urticaria [None]
